FAERS Safety Report 23006398 (Version 7)
Quarter: 2024Q1

REPORT INFORMATION
  Report Type: Report from Study
  Country: GB (occurrence: GB)
  Receive Date: 20230929
  Receipt Date: 20240325
  Transmission Date: 20240409
  Serious: Yes (Other)
  Sender: FDA-Public Use
  Company Number: GB-CLINIGEN-GB-CLI-2023-031133

PATIENT

DRUGS (52)
  1. PROLEUKIN [Suspect]
     Active Substance: ALDESLEUKIN
     Indication: Neoplasm
     Dosage: 39.6 MILION UNITS, BID
     Route: 042
     Dates: start: 20230913, end: 20230915
  2. LYMPHOCYTES [Suspect]
     Active Substance: LYMPHOCYTES
     Indication: Neoplasm
     Dosage: 1 X 10^9 X 150 X10^9 AT ONCE, 3 BAGS
     Route: 042
     Dates: start: 20230912, end: 20230912
  3. CYCLOPHOSPHAMIDE [Suspect]
     Active Substance: CYCLOPHOSPHAMIDE
     Indication: Neoplasm
     Dosage: 4044 MILLIGRAM, QD ONCE
     Route: 042
     Dates: start: 20230905, end: 20230906
  4. FLUDARABINE [Suspect]
     Active Substance: FLUDARABINE PHOSPHATE
     Indication: Neoplasm
     Dosage: 43 MILLIGRAM, QD
     Route: 042
     Dates: start: 20230907, end: 20230911
  5. PEMBROLIZUMAB [Suspect]
     Active Substance: PEMBROLIZUMAB
     Indication: Neoplasm
     Dosage: 400 MILLIGRAM, ONCE IN 6 WEEKS
     Route: 042
     Dates: start: 20230816
  6. PEMBROLIZUMAB [Suspect]
     Active Substance: PEMBROLIZUMAB
     Dosage: 400 MILLIGRAM
     Dates: start: 20231025
  7. PEMBROLIZUMAB [Suspect]
     Active Substance: PEMBROLIZUMAB
     Dosage: UNK
     Dates: start: 20231215
  8. ACYCLOVIR [Concomitant]
     Active Substance: ACYCLOVIR
     Indication: Antiviral prophylaxis
     Dosage: UNK, TID
     Route: 048
     Dates: start: 20230905
  9. ADCAL [CALCIUM CARBONATE;COLECALCIFEROL] [Concomitant]
     Indication: Vitamin supplementation
     Dosage: 1 DOSAGE FORM, BID
     Route: 048
     Dates: start: 20230907
  10. COTRIMOXAZOLE [Concomitant]
     Active Substance: SULFAMETHOXAZOLE\TRIMETHOPRIM
     Indication: Antibiotic prophylaxis
     Dosage: 480 MILLIGRAM, TWICE A DAY ON MON, WED, FRI
     Route: 048
     Dates: start: 20230906
  11. FAMOTIDINE [Concomitant]
     Active Substance: FAMOTIDINE
     Indication: Reflux gastritis
     Dosage: 20 MILLIGRAM, BID
     Route: 048
     Dates: start: 20230909
  12. ONDANSETRON [Concomitant]
     Active Substance: ONDANSETRON
     Indication: Nausea
     Dosage: 8 MG, Q8H
     Route: 042
     Dates: start: 20230908, end: 20230912
  13. ONDANSETRON [Concomitant]
     Active Substance: ONDANSETRON
     Indication: Vomiting
     Dosage: 8 MG, PRN
     Route: 042
     Dates: start: 20230912, end: 20230915
  14. MEPERIDINE [Concomitant]
     Active Substance: MEPERIDINE
     Indication: Chills
     Dosage: 25-50 MG EVERY 4 HOURS IF NEEDED
     Route: 042
     Dates: start: 20230913
  15. SUCRALFATE [Concomitant]
     Active Substance: SUCRALFATE
     Indication: Reflux gastritis
     Dosage: 1 GRAM, PRN EVERY 6 HOURS, ORAL SUSPENSION
     Route: 048
     Dates: start: 20230911
  16. TAUROLIDINE [Concomitant]
     Active Substance: TAUROLIDINE
     Indication: Central venous catheterisation
     Dosage: 10000 UNITS, AS NEEDED, VIA CENTRAL VENOUS ACCESS DEVICES
     Dates: start: 20230912
  17. SODIUM CHLORIDE [Concomitant]
     Active Substance: SODIUM CHLORIDE
     Indication: Fluid replacement
     Dosage: 1000 ML AT ONCE
     Route: 042
     Dates: start: 20230913, end: 20230913
  18. POTASSIUM CHLORIDE [Concomitant]
     Active Substance: POTASSIUM CHLORIDE
     Indication: Fluid replacement
     Dosage: 1000 ML AT ONCE
     Dates: start: 20230912, end: 20230912
  19. POTASSIUM CHLORIDE [Concomitant]
     Active Substance: POTASSIUM CHLORIDE
     Dosage: 1000 ML AT ONCE OVER 6 HOURS
     Route: 042
     Dates: start: 20230914, end: 20230914
  20. ACETAMINOPHEN [Concomitant]
     Active Substance: ACETAMINOPHEN
     Indication: Headache
     Dosage: 1000 MG PRN EVERY 6 HOURS
     Route: 042
     Dates: start: 20230906, end: 20230914
  21. ACETAMINOPHEN [Concomitant]
     Active Substance: ACETAMINOPHEN
     Indication: Pyrexia
     Dosage: 1 GRAM, PRN EVERY 6 HOURS
     Route: 048
     Dates: start: 20230914
  22. ACETAMINOPHEN [Concomitant]
     Active Substance: ACETAMINOPHEN
     Dosage: 1000 MG, PRN EVERY 6 HOURS
     Route: 042
     Dates: start: 20230914
  23. BENZYDAMINE [Concomitant]
     Active Substance: BENZYDAMINE
     Indication: Oropharyngeal pain
     Dosage: SWISH + SPIT, PRN
     Dates: start: 20230909
  24. BENZYDAMINE [Concomitant]
     Active Substance: BENZYDAMINE
     Indication: Mucosal inflammation
  25. CHLORPHENIRAMINE MALEATE [Concomitant]
     Active Substance: CHLORPHENIRAMINE MALEATE
     Indication: Hypersensitivity
     Dosage: 10 MG, PRN, INJECTION
     Route: 042
     Dates: start: 20230912
  26. CHLORPHENIRAMINE MALEATE [Concomitant]
     Active Substance: CHLORPHENIRAMINE MALEATE
     Indication: Pruritus
     Dosage: 4 MG, PRN, TABLET
     Route: 048
     Dates: start: 20230917, end: 20230917
  27. CHLORPHENIRAMINE MALEATE [Concomitant]
     Active Substance: CHLORPHENIRAMINE MALEATE
     Indication: Prophylaxis
     Dosage: 5 MG
     Route: 042
     Dates: start: 20230916, end: 20230917
  28. CHLORPHENIRAMINE MALEATE [Concomitant]
     Active Substance: CHLORPHENIRAMINE MALEATE
     Indication: Rash
  29. CLOTRIMAZOLE [Concomitant]
     Active Substance: CLOTRIMAZOLE
     Indication: Rash
     Dosage: BID
     Route: 061
     Dates: start: 20230917
  30. FLUCONAZOLE [Concomitant]
     Active Substance: FLUCONAZOLE
     Indication: Antiviral prophylaxis
     Dosage: 200 MILLIGRAM, QD
     Route: 048
     Dates: start: 20230915
  31. TINZAPARIN [Concomitant]
     Active Substance: TINZAPARIN
     Indication: Prophylaxis
     Dosage: 4500 UNITS, QD
     Route: 058
     Dates: start: 20230918
  32. ZOPICLONE [Concomitant]
     Active Substance: ZOPICLONE
     Indication: Insomnia
     Dosage: 3.75 MILLIGRAM, PRN AT NIGHT
     Route: 048
     Dates: start: 20230917, end: 20230918
  33. PIPERACILLIN AND TAZOBACTAM [Concomitant]
     Active Substance: PIPERACILLIN SODIUM\TAZOBACTAM SODIUM
     Indication: Sepsis
     Dosage: 4.5 GRAM, Q6H
     Route: 042
     Dates: start: 20230914, end: 20230919
  34. POTASSIUM [Concomitant]
     Active Substance: POTASSIUM
     Indication: Blood potassium decreased
     Dosage: 2 DOSAGE FORM, BID
     Route: 048
     Dates: start: 20230914, end: 20230914
  35. BETNOVATE [Concomitant]
     Active Substance: BETAMETHASONE
     Indication: Rash
     Dosage: TWICE A DAYS, AS PER NEED
     Route: 061
     Dates: start: 20230914, end: 20230919
  36. BETNOVATE [Concomitant]
     Active Substance: BETAMETHASONE
     Dosage: UNK, PRN
     Route: 061
     Dates: start: 20230920
  37. BETAMETHASONE VALERATE [Concomitant]
     Active Substance: BETAMETHASONE VALERATE
     Indication: Rash
     Dosage: UNK, QD
     Route: 061
     Dates: start: 20230919
  38. LEVOMEPROMAZINE [Concomitant]
     Active Substance: LEVOMEPROMAZINE
     Indication: Nausea
     Dosage: 3.125 MG, PRN
     Route: 058
     Dates: start: 20230906
  39. LEVOMEPROMAZINE [Concomitant]
     Active Substance: LEVOMEPROMAZINE
     Indication: Vomiting
  40. ISOPROPYL MYRISTATE\MINERAL OIL [Concomitant]
     Active Substance: ISOPROPYL MYRISTATE\MINERAL OIL
     Indication: Rash
     Dosage: UNK, PRN
     Route: 061
     Dates: start: 20230919
  41. ISOPROPYL MYRISTATE\MINERAL OIL [Concomitant]
     Active Substance: ISOPROPYL MYRISTATE\MINERAL OIL
     Indication: Dry skin
  42. POLYETHYLENE GLYCOLS [Concomitant]
     Active Substance: POLYETHYLENE GLYCOLS
     Indication: Constipation
     Dosage: 1 SACHET EVERY 12H PER NEED
     Route: 048
     Dates: start: 20230911
  43. MEDI DERM RX [Concomitant]
     Indication: Rash
     Dosage: SACHET, PRN
     Route: 061
     Dates: start: 20230916
  44. MENTHOL [Concomitant]
     Active Substance: MENTHOL
     Indication: Rash
     Dosage: EVERY 6 HOURS, PRN
     Route: 061
     Dates: start: 20230915
  45. QV BATH [Concomitant]
     Indication: Rash
     Dosage: FOR SHOWERING
     Route: 061
  46. AMIKACIN [Concomitant]
     Active Substance: AMIKACIN
     Indication: Sepsis
     Dosage: 15 MILLIGRAM/KILOGRAM, ONLY ONCE
     Route: 042
     Dates: start: 20230914, end: 20230914
  47. AMIKACIN [Concomitant]
     Active Substance: AMIKACIN
     Indication: Pyrexia
  48. MAGNESIUM SULFATE [Concomitant]
     Active Substance: MAGNESIUM SULFATE\MAGNESIUM SULFATE HEPTAHYDRATE
     Indication: Fluid replacement
     Dosage: 20 MMOL
     Route: 042
     Dates: start: 20230914, end: 20230914
  49. CALCIUM CHLORIDE\POTASSIUM CHLORIDE\SODIUM LACTATE [Concomitant]
     Active Substance: CALCIUM CHLORIDE\POTASSIUM CHLORIDE\SODIUM LACTATE
     Indication: Fluid replacement
     Dosage: 250 ML, ONCE ONLY
     Route: 042
     Dates: start: 20230914, end: 20230914
  50. CALCIUM CHLORIDE\POTASSIUM CHLORIDE\SODIUM LACTATE [Concomitant]
     Active Substance: CALCIUM CHLORIDE\POTASSIUM CHLORIDE\SODIUM LACTATE
     Dosage: 1000 MILLILITER, CONTINUOUS INFUSION
     Dates: start: 20230915, end: 20230915
  51. CALCIUM CHLORIDE\POTASSIUM CHLORIDE\SODIUM LACTATE [Concomitant]
     Active Substance: CALCIUM CHLORIDE\POTASSIUM CHLORIDE\SODIUM LACTATE
     Dosage: 1000 ML,  CONTINUOUS INFUSION
     Route: 042
     Dates: start: 20230918, end: 20230919
  52. FILGRASTIM [Concomitant]
     Active Substance: FILGRASTIM
     Indication: Neutrophil count decreased
     Dosage: 300 MICROGRAM, QD
     Route: 058
     Dates: start: 20230914, end: 20230915

REACTIONS (1)
  - Iridocyclitis [Recovered/Resolved]

NARRATIVE: CASE EVENT DATE: 20230919
